FAERS Safety Report 9347950 (Version 3)
Quarter: 2014Q4

REPORT INFORMATION
  Report Type: Spontaneous
  Country: US (occurrence: US)
  Receive Date: 20130614
  Receipt Date: 20141003
  Transmission Date: 20150529
  Serious: Yes (Other)
  Sender: FDA-Public Use
  Company Number: US-BAYER-2013-073067

PATIENT
  Age: 25 Year
  Sex: Female

DRUGS (1)
  1. MIRENA [Suspect]
     Active Substance: LEVONORGESTREL
     Indication: CONTRACEPTION
     Dosage: 20 MCG/24HR, CONT
     Route: 015
     Dates: start: 20100331, end: 20130513

REACTIONS (4)
  - Vaginal infection [None]
  - Embedded device [Recovered/Resolved]
  - Device breakage [Recovered/Resolved]
  - Complication of device removal [None]

NARRATIVE: CASE EVENT DATE: 20130509
